FAERS Safety Report 25129542 (Version 1)
Quarter: 2025Q1

REPORT INFORMATION
  Report Type: Spontaneous
  Country: PL (occurrence: PL)
  Receive Date: 20250327
  Receipt Date: 20250327
  Transmission Date: 20250409
  Serious: Yes (Hospitalization, Other)
  Sender: REGENERON
  Company Number: PL-BAYER-2025A036431

PATIENT
  Age: 84 Year
  Sex: Female

DRUGS (1)
  1. EYLEA HD [Suspect]
     Active Substance: AFLIBERCEPT
     Indication: Neovascular age-related macular degeneration
     Dates: start: 20250305

REACTIONS (5)
  - Blindness [Unknown]
  - Vitreous haze [Unknown]
  - Corneal deposits [Unknown]
  - Vitritis [Unknown]
  - Eye irritation [Unknown]

NARRATIVE: CASE EVENT DATE: 20250313
